FAERS Safety Report 18848775 (Version 2)
Quarter: 2021Q1

REPORT INFORMATION
  Report Type: Spontaneous
  Country: JP (occurrence: JP)
  Receive Date: 20210205
  Receipt Date: 20210222
  Transmission Date: 20210419
  Serious: Yes (Death)
  Sender: FDA-Public Use
  Company Number: JP-ROCHE-2763677

PATIENT
  Age: 9 Decade
  Sex: Male

DRUGS (2)
  1. AVIGAN [Suspect]
     Active Substance: FAVIPIRAVIR
     Indication: COVID-19 PNEUMONIA
     Route: 048
     Dates: start: 20201209, end: 20201213
  2. ACTEMRA [Suspect]
     Active Substance: TOCILIZUMAB
     Indication: COVID-19 PNEUMONIA
     Route: 041
     Dates: start: 20201209, end: 20201209

REACTIONS (3)
  - Off label use [Unknown]
  - Disease progression [Fatal]
  - Intentional product use issue [Unknown]
